FAERS Safety Report 12225146 (Version 12)
Quarter: 2018Q4

REPORT INFORMATION
  Report Type: Report from Study
  Country: AU (occurrence: AU)
  Receive Date: 20160331
  Receipt Date: 20181112
  Transmission Date: 20190204
  Serious: Yes (Hospitalization, Other)
  Sender: FDA-Public Use
  Company Number: AU-SA-2016SA055954

PATIENT
  Age: 51 Year
  Sex: Male
  Weight: 65 kg

DRUGS (17)
  1. MYCOPHENOLATE [Concomitant]
     Active Substance: MYCOPHENOLIC ACID
     Dosage: 500 MG, UNK
     Route: 048
  2. AGALSIDASE BETA [Suspect]
     Active Substance: AGALSIDASE BETA
     Dosage: 70 MG, QOW
     Route: 041
  3. PREDNISOLONE. [Concomitant]
     Active Substance: PREDNISOLONE
     Indication: PREMEDICATION
     Dosage: 5 MG,QD
     Route: 048
  4. ESOMEPRAZOLE. [Concomitant]
     Active Substance: ESOMEPRAZOLE MAGNESIUM
     Dosage: 20 MG, QD
     Route: 048
  5. CARBAMAZEPIN [Concomitant]
     Active Substance: CARBAMAZEPINE
  6. FLECAINIDE [Concomitant]
     Active Substance: FLECAINIDE
     Dosage: 1 DF, BID
     Route: 048
     Dates: start: 20181018
  7. AGALSIDASE BETA [Suspect]
     Active Substance: AGALSIDASE BETA
     Dosage: 1.05 MG/KG,QOW
     Route: 041
     Dates: start: 20160330
  8. ESOMEPRAZOLE. [Concomitant]
     Active Substance: ESOMEPRAZOLE MAGNESIUM
     Dosage: 1 DF
     Route: 048
     Dates: start: 20170112
  9. ASPIRIN [ACETYLSALICYLIC ACID] [Concomitant]
     Active Substance: ASPIRIN
     Dosage: 1 DF, QD
     Route: 048
     Dates: start: 20170127
  10. AGALSIDASE BETA [Suspect]
     Active Substance: AGALSIDASE BETA
     Indication: FABRY^S DISEASE
     Dosage: 1.05 MG/KG,QOW
     Route: 041
     Dates: start: 2000, end: 20160316
  11. CARBAMAZEPINE. [Concomitant]
     Active Substance: CARBAMAZEPINE
     Dosage: 3 DF, QD
     Route: 048
     Dates: start: 20170127
  12. MYCOPHENOLATE MOFETIL. [Concomitant]
     Active Substance: MYCOPHENOLATE MOFETIL
     Dosage: 1 DF, QD
     Route: 048
     Dates: start: 20160511
  13. CYCLOSPORIN [Concomitant]
     Active Substance: CYCLOSPORINE
     Dosage: 1 DF
     Route: 048
     Dates: start: 20171130
  14. MYCOPHENOLATE MOFETIL. [Concomitant]
     Active Substance: MYCOPHENOLATE MOFETIL
     Dosage: 1 DF, QD
     Route: 048
     Dates: start: 20160511
  15. MYCOPHENOLATE [Concomitant]
     Active Substance: MYCOPHENOLIC ACID
     Dosage: 250 MG, UNK
     Route: 048
  16. CYCLOSPORIN [Concomitant]
     Active Substance: CYCLOSPORINE
     Dosage: 75 MG, BID
     Route: 048
  17. PREDNISOLONE. [Concomitant]
     Active Substance: PREDNISOLONE
     Dosage: 1 DF
     Route: 048
     Dates: start: 20150910

REACTIONS (30)
  - Cholelithiasis [Recovered/Resolved]
  - Diarrhoea [Recovered/Resolved]
  - Hyperhidrosis [Unknown]
  - Vertebral foraminal stenosis [Unknown]
  - Neck pain [Unknown]
  - Shock [Recovered/Resolved]
  - Transient ischaemic attack [Unknown]
  - Sciatica [Unknown]
  - Vomiting [Recovered/Resolved]
  - Vomiting [Recovered/Resolved]
  - Personality change [Unknown]
  - Arthritis infective [Recovered/Resolved]
  - Atrial flutter [Recovered/Resolved]
  - Chest pain [Recovered/Resolved]
  - Mood altered [Not Recovered/Not Resolved]
  - X-ray abnormal [Unknown]
  - Atrial fibrillation [Recovered/Resolved]
  - Palpitations [Unknown]
  - Gastroenteritis [Recovered/Resolved]
  - Malaise [Not Recovered/Not Resolved]
  - Product use issue [Unknown]
  - Joint swelling [Recovered/Resolved]
  - Dyspnoea exertional [Unknown]
  - Bundle branch block right [Unknown]
  - Nausea [Recovered/Resolved]
  - Boredom [Not Recovered/Not Resolved]
  - Anger [Unknown]
  - Vomiting [Recovering/Resolving]
  - Mental disorder [Unknown]
  - Emotional disorder [Unknown]

NARRATIVE: CASE EVENT DATE: 201501
